FAERS Safety Report 12246145 (Version 2)
Quarter: 2016Q2

REPORT INFORMATION
  Report Type: Spontaneous
  Country: JP (occurrence: JP)
  Receive Date: 20160407
  Receipt Date: 20160425
  Transmission Date: 20160815
  Serious: Yes (Other)
  Sender: FDA-Public Use
  Company Number: JP-SA-2016SA066337

PATIENT
  Age: 67 Year
  Sex: Female

DRUGS (1)
  1. DOCETAXEL. [Suspect]
     Active Substance: DOCETAXEL
     Indication: BREAST CANCER
     Route: 065

REACTIONS (5)
  - Optic atrophy [Not Recovered/Not Resolved]
  - Visual acuity reduced [Recovering/Resolving]
  - Visual field defect [Not Recovered/Not Resolved]
  - Hypoaesthesia [Unknown]
  - Toxic optic neuropathy [Unknown]
